FAERS Safety Report 17877398 (Version 1)
Quarter: 2020Q2

REPORT INFORMATION
  Report Type: Spontaneous
  Country: FR (occurrence: FR)
  Receive Date: 20200609
  Receipt Date: 20200609
  Transmission Date: 20200714
  Serious: Yes (Other)
  Sender: FDA-Public Use
  Company Number: FR-009507513-2006FRA000345

PATIENT
  Age: 81 Year
  Sex: Female
  Weight: 68 kg

DRUGS (8)
  1. JANUMET [Suspect]
     Active Substance: METFORMIN HYDROCHLORIDE\SITAGLIPTIN PHOSPHATE
     Dosage: 50/1000 MG BID
     Route: 048
     Dates: start: 201912
  2. VITAMIN D (UNSPECIFIED) [Concomitant]
     Active Substance: VITAMIN D NOS
     Dosage: UNK
  3. METFORMIN [Suspect]
     Active Substance: METFORMIN HYDROCHLORIDE
     Dosage: 500 MILLIGRAM, BID
  4. METFORMIN [Suspect]
     Active Substance: METFORMIN HYDROCHLORIDE
     Dosage: 850 MILLIGRAM, BID
  5. FLECAINE [Concomitant]
     Active Substance: FLECAINIDE
     Dosage: UNK
  6. IRBESARTAN. [Concomitant]
     Active Substance: IRBESARTAN
     Dosage: UNK
  7. KARDEGIC [Concomitant]
     Active Substance: ASPIRIN DL-LYSINE
     Dosage: UNK
  8. ALENDRONIC ACID [Concomitant]
     Active Substance: ALENDRONIC ACID
     Dosage: UNK

REACTIONS (2)
  - Rheumatoid arthritis [Unknown]
  - Weight decreased [Recovering/Resolving]

NARRATIVE: CASE EVENT DATE: 2020
